FAERS Safety Report 13354934 (Version 1)
Quarter: 2017Q1

REPORT INFORMATION
  Report Type: Report from Study
  Country: US (occurrence: US)
  Receive Date: 20170321
  Receipt Date: 20170321
  Transmission Date: 20170429
  Serious: Yes (Hospitalization)
  Sender: FDA-Public Use
  Company Number: US-BIOGEN-2017BI00373570

PATIENT
  Age: 59 Year
  Sex: Female

DRUGS (1)
  1. TYSABRI [Suspect]
     Active Substance: NATALIZUMAB
     Indication: MULTIPLE SCLEROSIS
     Dosage: INFUSED OVER ONE HOUR
     Route: 042
     Dates: start: 20140304, end: 20170104

REACTIONS (7)
  - Medical induction of coma [Recovered/Resolved]
  - Nausea [Recovered/Resolved]
  - Band sensation [Recovered/Resolved]
  - Renal failure [Not Recovered/Not Resolved]
  - Loss of consciousness [Recovered/Resolved]
  - Seizure [Recovered/Resolved]
  - Diarrhoea infectious [Not Recovered/Not Resolved]

NARRATIVE: CASE EVENT DATE: 20160812
